FAERS Safety Report 15156729 (Version 3)
Quarter: 2019Q3

REPORT INFORMATION
  Report Type: Spontaneous
  Country: US (occurrence: US)
  Receive Date: 20180717
  Receipt Date: 20190919
  Transmission Date: 20191004
  Serious: Yes (Other)
  Sender: FDA-Public Use
  Company Number: US-BAUSCH-BL-2018-015340

PATIENT
  Sex: Male
  Weight: 69.01 kg

DRUGS (2)
  1. XIFAXAN [Suspect]
     Active Substance: RIFAXIMIN
     Indication: HEPATIC FAILURE
     Dosage: STARTED ABOUT 3-4 YEARS AGO
     Route: 048
     Dates: end: 201804
  2. XIFAXAN [Suspect]
     Active Substance: RIFAXIMIN
     Indication: HEPATIC CIRRHOSIS
     Route: 048
     Dates: start: 20180523, end: 201907

REACTIONS (10)
  - Lethargy [Not Recovered/Not Resolved]
  - Memory impairment [Unknown]
  - Jaundice [Not Recovered/Not Resolved]
  - Ammonia increased [Not Recovered/Not Resolved]
  - Frustration tolerance decreased [Not Recovered/Not Resolved]
  - Confusional state [Unknown]
  - Disorientation [Not Recovered/Not Resolved]
  - Therapy cessation [Unknown]
  - Diarrhoea [Not Recovered/Not Resolved]
  - Insurance issue [Unknown]

NARRATIVE: CASE EVENT DATE: 2018
